FAERS Safety Report 23884706 (Version 1)
Quarter: 2024Q2

REPORT INFORMATION
  Report Type: Spontaneous
  Country: CA (occurrence: CA)
  Receive Date: 20240522
  Receipt Date: 20240522
  Transmission Date: 20240716
  Serious: Yes (Other)
  Sender: FDA-Public Use
  Company Number: CA-PFIZER INC-202400173576

PATIENT
  Age: 74 Year
  Sex: Female
  Weight: 73 kg

DRUGS (3)
  1. METHOTREXATE SODIUM [Suspect]
     Active Substance: METHOTREXATE SODIUM
     Indication: Rheumatoid arthritis
     Dosage: 7.5 MG
     Route: 058
  2. PLAQUENIL [Concomitant]
     Active Substance: HYDROXYCHLOROQUINE SULFATE
     Dosage: UNK
  3. PREDNISONE [Concomitant]
     Active Substance: PREDNISONE
     Indication: Condition aggravated
     Dosage: UNK, AS NEEDED

REACTIONS (3)
  - Loss of personal independence in daily activities [Unknown]
  - Gastrointestinal disorder [Unknown]
  - Off label use [Unknown]
